FAERS Safety Report 25496671 (Version 1)
Quarter: 2025Q2

REPORT INFORMATION
  Report Type: Spontaneous
  Country: GB (occurrence: GB)
  Receive Date: 20250630
  Receipt Date: 20250630
  Transmission Date: 20250716
  Serious: Yes (Disabling, Other)
  Sender: TAKEDA
  Company Number: None

PATIENT
  Age: 49 Year
  Sex: Female
  Weight: 53 kg

DRUGS (1)
  1. LISDEXAMFETAMINE DIMESYLATE [Suspect]
     Active Substance: LISDEXAMFETAMINE DIMESYLATE
     Indication: Adverse drug reaction
     Dosage: 50 MILLIGRAM, QD
     Dates: start: 20250425, end: 20250606

REACTIONS (2)
  - Medication error [Unknown]
  - Selective mutism [Recovered/Resolved with Sequelae]

NARRATIVE: CASE EVENT DATE: 20250602
